FAERS Safety Report 5519123-9 (Version None)
Quarter: 2007Q4

REPORT INFORMATION
  Report Type: 
  Country: None (occurrence: None)
  Receive Date: 20071114
  Receipt Date: 20071114
  Transmission Date: 20080405
  Serious: Yes (Other)
  Sender: FDA-Public Use
  Company Number: None

PATIENT
  Age: 15 Year
  Sex: Female
  Weight: 43.0917 kg

DRUGS (2)
  1. SINGULAIR [Suspect]
     Indication: ASTHMA EXERCISE INDUCED
     Dosage: 1 TABLET  DAILY  PO
     Route: 048
     Dates: start: 20071113, end: 20071113
  2. SINGULAIR [Suspect]
     Indication: FOOD ALLERGY
     Dosage: 1 TABLET  DAILY  PO
     Route: 048
     Dates: start: 20071113, end: 20071113

REACTIONS (5)
  - CONTRAINDICATION TO MEDICAL TREATMENT [None]
  - OESOPHAGEAL PAIN [None]
  - ORAL MUCOSAL BLISTERING [None]
  - UNEVALUABLE EVENT [None]
  - URTICARIA [None]
